APPROVED DRUG PRODUCT: LATANOPROST
Active Ingredient: LATANOPROST
Strength: 0.005%
Dosage Form/Route: SOLUTION/DROPS;OPHTHALMIC
Application: A202077 | Product #001
Applicant: PHARMOBEDIENT CONSULTING LLC
Approved: Feb 11, 2013 | RLD: No | RS: No | Type: DISCN